FAERS Safety Report 5404054-5 (Version None)
Quarter: 2007Q3

REPORT INFORMATION
  Report Type: 
  Country: None (occurrence: None)
  Receive Date: 20070802
  Receipt Date: 20070723
  Transmission Date: 20080115
  Serious: Yes (Hospitalization)
  Sender: FDA-Public Use
  Company Number: CA-ELI_LILLY_AND_COMPANY-CA200706005415

PATIENT
  Age: 81 Year
  Sex: Female

DRUGS (3)
  1. FORTEO [Suspect]
     Indication: OSTEOPOROSIS
     Dosage: 20 UG, DAILY (1/D)
     Route: 058
     Dates: start: 20070118
  2. PREDNISONE [Concomitant]
  3. COUMADIN [Concomitant]

REACTIONS (7)
  - BACK PAIN [None]
  - DYSPHAGIA [None]
  - GAIT DISTURBANCE [None]
  - HIP ARTHROPLASTY [None]
  - PAIN [None]
  - POLYP [None]
  - ULCER [None]
